FAERS Safety Report 5692219-7 (Version None)
Quarter: 2008Q2

REPORT INFORMATION
  Report Type: 
  Country: None (occurrence: None)
  Receive Date: 20080402
  Receipt Date: 20080325
  Transmission Date: 20081010
  Serious: Yes (Life-Threatening)
  Sender: FDA-Public Use
  Company Number: JP-PFIZER INC-2008024347

PATIENT
  Sex: Female
  Weight: 41 kg

DRUGS (4)
  1. NORVASC [Suspect]
     Indication: HYPERTENSION
     Route: 048
     Dates: start: 20070118, end: 20080213
  2. TANATRIL ^TANABE^ [Concomitant]
     Route: 048
  3. SHINLUCK [Concomitant]
     Route: 048
  4. FAMOTIDINE [Concomitant]
     Route: 048
     Dates: start: 20080121

REACTIONS (6)
  - ANAEMIA MACROCYTIC [None]
  - HERPES ZOSTER [None]
  - HYPERLIPIDAEMIA [None]
  - HYPOPROTEINAEMIA [None]
  - VOMITING [None]
  - WHITE BLOOD CELL COUNT DECREASED [None]
